FAERS Safety Report 6894643-3 (Version None)
Quarter: 2010Q3

REPORT INFORMATION
  Report Type: 
  Country: None (occurrence: None)
  Receive Date: 20100802
  Receipt Date: 20100728
  Transmission Date: 20110219
  Serious: Yes (Hospitalization, Other)
  Sender: FDA-Public Use
  Company Number: DE-BRISTOL-MYERS SQUIBB COMPANY-15067606

PATIENT
  Age: 79 Year
  Sex: Female

DRUGS (2)
  1. APROVEL TABS [Suspect]
     Indication: HYPERTENSION
     Dosage: 300MG DAILY
     Route: 048
  2. ANTIDIABETIC PRODUCT [Interacting]
     Route: 048

REACTIONS (5)
  - DRUG INTERACTION [None]
  - DYSPNOEA [None]
  - FALL [None]
  - MYOCARDIAL INFARCTION [None]
  - TRAUMATIC LUNG INJURY [None]
